FAERS Safety Report 6428577-5 (Version None)
Quarter: 2009Q4

REPORT INFORMATION
  Report Type: 
  Country: None (occurrence: None)
  Receive Date: 20091105
  Receipt Date: 20091028
  Transmission Date: 20100525
  Serious: Yes (Other)
  Sender: FDA-Public Use
  Company Number: CA-JNJFOC-20091008837

PATIENT
  Sex: Male
  Weight: 61.5 kg

DRUGS (4)
  1. REMICADE [Suspect]
     Dosage: 3 INFUSIONS REPORTED AT 600 MG
     Route: 042
     Dates: start: 20081125, end: 20090814
  2. REMICADE [Suspect]
     Dosage: DOSE ALSO REPORTED AS 10MG/KG FOR 4 DOSES
     Route: 042
     Dates: start: 20081125, end: 20090814
  3. REMICADE [Suspect]
     Indication: CROHN'S DISEASE
     Dosage: TOTAL OF 5 INFUSIONS, DOSE ALSO REPORTED AS 5 MG/KG
     Route: 042
     Dates: start: 20081125, end: 20090814
  4. PURINETHOL [Concomitant]

REACTIONS (2)
  - DRUG INEFFECTIVE [None]
  - ILEECTOMY [None]
